FAERS Safety Report 5738574-0 (Version None)
Quarter: 2008Q2

REPORT INFORMATION
  Report Type: 
  Country: None (occurrence: None)
  Receive Date: 20080513
  Receipt Date: 20080307
  Transmission Date: 20081010
  Serious: Yes (Other)
  Sender: FDA-Public Use
  Company Number: ADE# 08-033

PATIENT
  Sex: Male
  Weight: 72.5755 kg

DRUGS (2)
  1. METOPROLOL TARTRATE [Suspect]
     Indication: PROCEDURAL HYPERTENSION
     Dosage: 1 TABLET, 3XDAILY
     Dates: start: 20080101, end: 20080301
  2. RANITIDINE 300MG [Concomitant]

REACTIONS (12)
  - DEPRESSION [None]
  - DRUG EFFECT DECREASED [None]
  - EYE PAIN [None]
  - FATIGUE [None]
  - HEART RATE DECREASED [None]
  - HYPERTENSION [None]
  - HYPOAESTHESIA FACIAL [None]
  - HYPOTENSION [None]
  - IRRITABILITY [None]
  - MEMORY IMPAIRMENT [None]
  - PARAESTHESIA [None]
  - RENAL PAIN [None]
